FAERS Safety Report 9073114 (Version 1)
Quarter: 2013Q1

REPORT INFORMATION
  Report Type: Report from Study
  Country: US (occurrence: US)
  Receive Date: 20130129
  Receipt Date: 20130129
  Transmission Date: 20140127
  Serious: No
  Sender: FDA-Public Use
  Company Number: US-ABBOTT-12P-163-0930850-00

PATIENT
  Age: 49 Year
  Sex: Male

DRUGS (3)
  1. HUMIRA 40 MG/0.8 ML PEN [Suspect]
     Indication: CROHN^S DISEASE
     Dates: start: 201202
  2. METOPROLOL [Concomitant]
     Indication: HYPERTENSION
     Dosage: 100MG X 1/2 TABLET TWICE DAILY
  3. MAXIDE [Concomitant]
     Indication: HYPERTENSION

REACTIONS (1)
  - Pain in extremity [Not Recovered/Not Resolved]
